FAERS Safety Report 5411147-5 (Version None)
Quarter: 2007Q3

REPORT INFORMATION
  Report Type: 
  Country: None (occurrence: None)
  Receive Date: 20070808
  Receipt Date: 20070724
  Transmission Date: 20080115
  Serious: Yes (Death)
  Sender: FDA-Public Use
  Company Number: 2007001238

PATIENT
  Age: 73 Year
  Sex: Male

DRUGS (5)
  1. TARCEVA [Suspect]
     Indication: NON-SMALL CELL LUNG CANCER
     Dosage: 150 MG (QD), ORAL
     Route: 048
     Dates: start: 20061128, end: 20061203
  2. MEGESTROL ACETATE [Concomitant]
  3. MYCOPHENOLIC ACID [Concomitant]
  4. ALFUZOSIN (ALFUZOSIN) [Concomitant]
  5. DEFLAZACORT (DEFLAZACORT) [Concomitant]

REACTIONS (1)
  - DYSPNOEA [None]
